FAERS Safety Report 5043236-1 (Version None)
Quarter: 2006Q2

REPORT INFORMATION
  Report Type: 
  Country: None (occurrence: None)
  Receive Date: 20060627
  Receipt Date: 20060612
  Transmission Date: 20061013
  Serious: Yes (Hospitalization)
  Sender: FDA-Public Use
  Company Number: CIP06001218

PATIENT
  Age: 69 Year
  Sex: Female

DRUGS (4)
  1. RISEDRONATE SODIUM [Suspect]
     Indication: OSTEOPOROSIS
     Dosage: 2.5 MG, DAILY, ORAL
     Route: 048
     Dates: start: 20031210, end: 20060412
  2. ZOLPIDEM TARTRATE [Concomitant]
  3. DEPAS (ETIZOLAM) [Concomitant]
  4. DICLOFENAC SODIUM [Concomitant]

REACTIONS (35)
  - AGITATION [None]
  - ALANINE AMINOTRANSFERASE INCREASED [None]
  - AORTIC CALCIFICATION [None]
  - ASCITES [None]
  - ASPARTATE AMINOTRANSFERASE INCREASED [None]
  - BASE EXCESS [None]
  - BLADDER DISORDER [None]
  - BLOOD CALCIUM DECREASED [None]
  - BLOOD CHOLESTEROL INCREASED [None]
  - BLOOD CREATININE INCREASED [None]
  - BLOOD GLUCOSE INCREASED [None]
  - BLOOD LACTATE DEHYDROGENASE INCREASED [None]
  - BLOOD PHOSPHORUS INCREASED [None]
  - BLOOD PRESSURE DECREASED [None]
  - BLOOD UREA INCREASED [None]
  - CARDIOMEGALY [None]
  - COAGULOPATHY [None]
  - CYANOSIS [None]
  - DEEP VEIN THROMBOSIS [None]
  - DELIRIUM [None]
  - EXCITABILITY [None]
  - GAMMA-GLUTAMYLTRANSFERASE INCREASED [None]
  - HIATUS HERNIA [None]
  - INSOMNIA [None]
  - MALAISE [None]
  - NEOPLASM MALIGNANT [None]
  - PERICARDIAL EFFUSION [None]
  - PLATELET COUNT DECREASED [None]
  - PLEURAL EFFUSION [None]
  - PULMONARY EMBOLISM [None]
  - PULMONARY HYPERTENSION [None]
  - RENAL CYST [None]
  - SPINAL OSTEOARTHRITIS [None]
  - THYROID NEOPLASM [None]
  - WHITE BLOOD CELL COUNT INCREASED [None]
